FAERS Safety Report 11232083 (Version 1)
Quarter: 2015Q2

REPORT INFORMATION
  Report Type: Spontaneous
  Country: US (occurrence: None)
  Receive Date: 20150630
  Receipt Date: 20150630
  Transmission Date: 20150821
  Serious: No
  Sender: FDA-Public Use
  Company Number: None

PATIENT

DRUGS (2)
  1. VINCRISTINE SULFATE VINCRISTINE [Suspect]
     Active Substance: VINCRISTINE SULFATE
  2. METHOTREXATE INJECTION METHOTREXATE [Suspect]
     Active Substance: METHOTREXATE

REACTIONS (3)
  - Product label confusion [None]
  - Wrong drug administered [None]
  - Headache [None]
